FAERS Safety Report 4893809-1 (Version None)
Quarter: 2005Q4

REPORT INFORMATION
  Report Type: 
  Country: None (occurrence: None)
  Receive Date: 20051223
  Receipt Date: 20051121
  Transmission Date: 20060501
  Serious: No
  Sender: FDA-Public Use
  Company Number: 2005PV004647

PATIENT
  Age: 57 Year
  Sex: Female
  Weight: 85.2762 kg

DRUGS (4)
  1. SYMLIN [Suspect]
     Indication: DIABETES MELLITUS NON-INSULIN-DEPENDENT
     Dosage: 120 MCG;TID;SC, 60 MCG;TID;SC
     Route: 058
     Dates: start: 20051101, end: 20051101
  2. SYMLIN [Suspect]
     Indication: DIABETES MELLITUS NON-INSULIN-DEPENDENT
     Dosage: 120 MCG;TID;SC, 60 MCG;TID;SC
     Route: 058
     Dates: start: 20051101
  3. LANTUS [Concomitant]
  4. NOVOLOG [Concomitant]

REACTIONS (1)
  - EARLY SATIETY [None]
